FAERS Safety Report 17417338 (Version 1)
Quarter: 2020Q1

REPORT INFORMATION
  Report Type: Spontaneous
  Country: CA (occurrence: CA)
  Receive Date: 20200214
  Receipt Date: 20200214
  Transmission Date: 20200409
  Serious: Yes (Other)
  Sender: FDA-Public Use
  Company Number: CA-PFIZER INC-2020065755

PATIENT
  Sex: Male

DRUGS (10)
  1. PENTASA [Suspect]
     Active Substance: MESALAMINE
     Dosage: 1 G, UNK
  2. MIDAZOLAM HYDROCHLORIDE. [Suspect]
     Active Substance: MIDAZOLAM HYDROCHLORIDE
     Dosage: 5 MG, UNK
  3. FENTANYL CITRATE. [Suspect]
     Active Substance: FENTANYL CITRATE
     Dosage: 100 UG, UNK
  4. VEDOLIZUMAB [Suspect]
     Active Substance: VEDOLIZUMAB
     Dosage: UNK
     Route: 065
  5. HUMIRA [Suspect]
     Active Substance: ADALIMUMAB
     Indication: COLITIS ULCERATIVE
     Dosage: UNK
     Route: 058
  6. CALCIUM CARBONATE. [Suspect]
     Active Substance: CALCIUM CARBONATE
     Dosage: 600 MG, UNK
  7. BIFIDOBACTERIUM ANIMALIS SUBSP. LACTIS [Suspect]
     Active Substance: BIFIDOBACTERIUM ANIMALIS LACTIS
     Dosage: UNK
  8. VITAMIN D3 [Suspect]
     Active Substance: CHOLECALCIFEROL
     Dosage: 4000 IU, 3X/DAY
     Route: 065
  9. PREDNISONE. [Suspect]
     Active Substance: PREDNISONE
     Dosage: 7 MG, UNK
     Route: 048
  10. PENTASA [Suspect]
     Active Substance: MESALAMINE
     Dosage: 1 G, UNK
     Route: 065

REACTIONS (13)
  - Frequent bowel movements [Recovered/Resolved]
  - Dyschezia [Recovered/Resolved]
  - Anorectal discomfort [Recovered/Resolved]
  - Drug ineffective [Recovered/Resolved]
  - Mouth ulceration [Recovered/Resolved]
  - Calcinosis [Recovered/Resolved]
  - Colitis [Recovered/Resolved]
  - Colitis ulcerative [Recovered/Resolved]
  - Granuloma [Recovered/Resolved]
  - Mucous stools [Recovered/Resolved]
  - Acrochordon [Recovered/Resolved]
  - Lung hyperinflation [Recovered/Resolved]
  - Proctalgia [Recovered/Resolved]
